FAERS Safety Report 17327378 (Version 9)
Quarter: 2023Q2

REPORT INFORMATION
  Report Type: Spontaneous
  Country: US (occurrence: US)
  Receive Date: 20200127
  Receipt Date: 20230410
  Transmission Date: 20230722
  Serious: Yes (Death, Hospitalization, Disabling, Other)
  Sender: FDA-Public Use
  Company Number: US-PFIZER INC-2020036970

PATIENT
  Age: 75 Year
  Sex: Female

DRUGS (1)
  1. ELELYSO [Suspect]
     Active Substance: TALIGLUCERASE ALFA
     Indication: Gaucher^s disease
     Dosage: UNK

REACTIONS (7)
  - Death [Fatal]
  - Fall [Unknown]
  - Loss of consciousness [Unknown]
  - Diabetes mellitus [Unknown]
  - COVID-19 [Recovered/Resolved]
  - Pain [Unknown]
  - Urinary tract infection [Unknown]

NARRATIVE: CASE EVENT DATE: 20201202
